FAERS Safety Report 16980163 (Version 4)
Quarter: 2022Q3

REPORT INFORMATION
  Report Type: Spontaneous
  Country: FR (occurrence: FR)
  Receive Date: 20191031
  Receipt Date: 20220907
  Transmission Date: 20221026
  Serious: Yes (Other)
  Sender: FDA-Public Use
  Company Number: FR-ALEXION-A201916575

PATIENT

DRUGS (1)
  1. STRENSIQ [Suspect]
     Active Substance: ASFOTASE ALFA
     Indication: Product used for unknown indication
     Dosage: UNK
     Route: 065

REACTIONS (9)
  - Bone disorder [Recovering/Resolving]
  - Hypotonia [Unknown]
  - Decreased appetite [Unknown]
  - Growth retardation [Unknown]
  - Condition aggravated [Unknown]
  - Hip deformity [Unknown]
  - Fracture [Unknown]
  - Drug specific antibody present [Unknown]
  - Neutralising antibodies positive [Unknown]
